FAERS Safety Report 8189779-3 (Version None)
Quarter: 2012Q1

REPORT INFORMATION
  Report Type: 
  Country: None (occurrence: None)
  Receive Date: 20120307
  Receipt Date: 20110210
  Transmission Date: 20120608
  Serious: No
  Sender: FDA-Public Use
  Company Number: US-GLAXOSMITHKLINE-A0912911A

PATIENT
  Sex: Male

DRUGS (3)
  1. MEDICATION FOR HIGH BLOOD PRESSURE [Concomitant]
  2. IRON [Concomitant]
  3. ROPINIROLE [Suspect]
     Indication: RESTLESS LEGS SYNDROME
     Route: 048

REACTIONS (1)
  - DRUG INEFFECTIVE [None]
